FAERS Safety Report 4438857-0 (Version None)
Quarter: 2004Q3

REPORT INFORMATION
  Report Type: 
  Country: None (occurrence: None)
  Receive Date: 20040901
  Receipt Date: 20040826
  Transmission Date: 20050211
  Serious: Yes (Hospitalization)
  Sender: FDA-Public Use
  Company Number: 200413215FR

PATIENT
  Age: 86 Year
  Sex: Female

DRUGS (10)
  1. LASILIX 40 MG [Suspect]
     Route: 048
     Dates: end: 20040625
  2. RISPERDAL [Suspect]
     Indication: DEMENTIA ALZHEIMER'S TYPE
     Route: 048
     Dates: start: 20040606, end: 20040621
  3. OXAZEPAM [Suspect]
     Route: 048
     Dates: start: 20040606, end: 20040621
  4. FUNGIZONE [Suspect]
     Route: 048
     Dates: end: 20040621
  5. DIDRONEL [Suspect]
     Route: 048
     Dates: end: 20040621
  6. NEO-MERCAZOLE TAB [Suspect]
     Route: 048
     Dates: end: 20040621
  7. PREVISCAN [Concomitant]
     Route: 048
     Dates: end: 20040621
  8. ZESTRIL [Concomitant]
     Route: 048
     Dates: end: 20040621
  9. THEOSTAT [Concomitant]
     Route: 048
     Dates: end: 20040621
  10. NEXXAIR [Concomitant]
     Route: 045
     Dates: end: 20040621

REACTIONS (3)
  - DEPRESSED LEVEL OF CONSCIOUSNESS [None]
  - GENERAL PHYSICAL HEALTH DETERIORATION [None]
  - STUPOR [None]
